FAERS Safety Report 10554253 (Version 1)
Quarter: 2014Q4

REPORT INFORMATION
  Report Type: Spontaneous
  Country: US (occurrence: None)
  Receive Date: 20141029
  Receipt Date: 20141029
  Transmission Date: 20150529
  Serious: No
  Sender: FDA-Public Use
  Company Number: None

PATIENT
  Age: 51 Year
  Sex: Female
  Weight: 86.18 kg

DRUGS (2)
  1. OXALIPLATIN. [Suspect]
     Active Substance: OXALIPLATIN
  2. OXALIPLATIN. [Suspect]
     Active Substance: OXALIPLATIN
     Route: 042
     Dates: start: 20140701, end: 20141022

REACTIONS (5)
  - Nausea [None]
  - Paraesthesia [None]
  - Infusion related reaction [None]
  - Pruritus [None]
  - Oesophageal spasm [None]

NARRATIVE: CASE EVENT DATE: 20141022
